FAERS Safety Report 4406219-8 (Version None)
Quarter: 2004Q3

REPORT INFORMATION
  Report Type: 
  Country: None (occurrence: None)
  Receive Date: 20040723
  Receipt Date: 20040520
  Transmission Date: 20050211
  Serious: No
  Sender: FDA-Public Use
  Company Number: US-GLAXOSMITHKLINE-A0511595A

PATIENT
  Age: 61 Year
  Sex: Male

DRUGS (12)
  1. AVANDIA [Suspect]
     Dosage: 4MG PER DAY
     Route: 048
     Dates: start: 20040508
  2. METFORMIN HCL [Concomitant]
  3. LISINOPRIL [Concomitant]
  4. NORVASC [Concomitant]
  5. TRIAMTERENE [Concomitant]
  6. ATENOLOL [Concomitant]
  7. GLYBURIDE [Concomitant]
  8. PRILOSEC [Concomitant]
  9. CRESTOR [Concomitant]
  10. PLAVIX [Concomitant]
  11. WARFARIN SODIUM [Concomitant]
  12. ASPIRIN [Concomitant]

REACTIONS (3)
  - COUGH [None]
  - HOARSENESS [None]
  - OEDEMA [None]
